FAERS Safety Report 18999043 (Version 1)
Quarter: 2021Q1

REPORT INFORMATION
  Report Type: Spontaneous
  Country: US (occurrence: US)
  Receive Date: 20210312
  Receipt Date: 20210312
  Transmission Date: 20210420
  Serious: No
  Sender: FDA-Public Use
  Company Number: US-BIOGEN-2020BI00946600

PATIENT
  Sex: Female

DRUGS (2)
  1. VUMERITY [Suspect]
     Active Substance: DIROXIMEL FUMARATE
     Indication: MULTIPLE SCLEROSIS
     Route: 048
     Dates: start: 20201106
  2. TECFIDERA [Suspect]
     Active Substance: DIMETHYL FUMARATE
     Indication: MULTIPLE SCLEROSIS
     Route: 065

REACTIONS (12)
  - Influenza like illness [Unknown]
  - Fatigue [Unknown]
  - Tinnitus [Unknown]
  - Poor quality sleep [Unknown]
  - Anxiety [Recovered/Resolved]
  - Initial insomnia [Unknown]
  - Nervousness [Unknown]
  - Hot flush [Unknown]
  - Somnolence [Unknown]
  - Visual acuity reduced [Unknown]
  - Nausea [Unknown]
  - Flushing [Unknown]
